FAERS Safety Report 7590397-6 (Version None)
Quarter: 2011Q3

REPORT INFORMATION
  Report Type: 
  Country: None (occurrence: None)
  Receive Date: 20110705
  Receipt Date: 20110627
  Transmission Date: 20111222
  Serious: Yes (Hospitalization)
  Sender: FDA-Public Use
  Company Number: US-JNJFOC-20110612155

PATIENT
  Age: 44 Year
  Sex: Male
  Weight: 138.35 kg

DRUGS (15)
  1. PHENERGAN HCL [Concomitant]
  2. NORVASC [Concomitant]
  3. STELARA [Suspect]
     Indication: PSORIASIS
     Route: 058
     Dates: start: 20110322
  4. STELARA [Suspect]
     Route: 058
     Dates: start: 20110420
  5. PERCOCET [Concomitant]
     Indication: PAIN
  6. ATARAX [Concomitant]
  7. REGLAN [Concomitant]
  8. LEXAPRO [Concomitant]
  9. DIFLUCAN [Concomitant]
  10. NEXIUM [Concomitant]
  11. AMLODIPINE [Concomitant]
  12. LISINOPRIL [Concomitant]
  13. DALTEPARIN SODIUM [Concomitant]
  14. ATIVAN [Concomitant]
  15. OXYCONTIN [Concomitant]

REACTIONS (3)
  - PSORIASIS [None]
  - PNEUMONIA [None]
  - STAPHYLOCOCCAL INFECTION [None]
